FAERS Safety Report 9351494 (Version 1)
Quarter: 2013Q2

REPORT INFORMATION
  Report Type: Report from Study
  Country: JP (occurrence: JP)
  Receive Date: 20130617
  Receipt Date: 20130617
  Transmission Date: 20140414
  Serious: Yes (Death, Other)
  Sender: FDA-Public Use
  Company Number: JP-009507513-2012SP013386

PATIENT
  Age: 81 Year
  Sex: Male
  Weight: 51 kg

DRUGS (13)
  1. TEMODAL INFUSION 100MG [Suspect]
     Indication: GLIOBLASTOMA MULTIFORME
     Dosage: 75 MG/M2, QD
     Route: 041
     Dates: start: 20110621, end: 20110801
  2. BAKTAR [Concomitant]
     Indication: ANTIFUNGAL PROPHYLAXIS
     Dosage: UNK, UNK, POR, BY TUBE
     Route: 050
     Dates: start: 20110621, end: 20110801
  3. TAKEPRON [Concomitant]
     Indication: PROPHYLAXIS
     Dosage: UNK, UNK, BY TUBE
     Route: 050
     Dates: start: 20110623
  4. NAUZELIN [Concomitant]
     Indication: PROPHYLAXIS
     Dosage: UNK, UNK, POR, BY TUBE
     Route: 050
     Dates: start: 20110720
  5. NASEA [Concomitant]
     Indication: PROPHYLAXIS
     Dosage: UNK, UNK, BY TUBE
     Route: 050
     Dates: start: 20110621, end: 20110624
  6. DESLANOSIDE [Concomitant]
     Indication: ATRIAL FIBRILLATION
     Dosage: UNK, UNK, + RAW DIET 50ML
     Route: 042
     Dates: start: 20110717, end: 20110717
  7. CIBENOL [Concomitant]
     Indication: ATRIAL FIBRILLATION
     Dosage: UNK, UNK, + RAW DIET 20ML
     Route: 042
     Dates: start: 20110701, end: 20110701
  8. CIBENOL [Concomitant]
     Dosage: UNK, + RAW DIET 20ML
     Route: 065
     Dates: start: 20110708, end: 20110708
  9. VASOLAN [Concomitant]
     Dosage: UNK, , + RAW DIET
     Route: 041
     Dates: start: 20110709, end: 20110709
  10. SODIUM CHLORIDE [Concomitant]
     Indication: ATRIAL FIBRILLATION
     Dosage: UNK
     Route: 042
     Dates: start: 20110701, end: 20110701
  11. SODIUM CHLORIDE [Concomitant]
     Dosage: UNK
     Route: 042
     Dates: start: 20110708, end: 20110708
  12. SODIUM CHLORIDE [Concomitant]
     Dosage: UNK
     Route: 042
     Dates: start: 20110709, end: 20110709
  13. SODIUM CHLORIDE [Concomitant]
     Dosage: UNK
     Route: 042
     Dates: start: 20110717, end: 20110717

REACTIONS (12)
  - Death [Fatal]
  - Tachycardia paroxysmal [Unknown]
  - Brain oedema [Recovering/Resolving]
  - Blood lactate dehydrogenase increased [Recovered/Resolved]
  - Blood bilirubin increased [Recovered/Resolved]
  - Protein total decreased [Unknown]
  - Blood albumin decreased [Unknown]
  - Blood uric acid decreased [Unknown]
  - Blood triglycerides decreased [Unknown]
  - C-reactive protein increased [Recovered/Resolved]
  - Blood sodium decreased [Recovered/Resolved]
  - Blood chloride decreased [Unknown]
